FAERS Safety Report 24551047 (Version 1)
Quarter: 2024Q4

REPORT INFORMATION
  Report Type: Spontaneous
  Country: US (occurrence: None)
  Receive Date: 20241025
  Receipt Date: 20241025
  Transmission Date: 20250114
  Serious: Yes (Hospitalization)
  Sender: Public
  Company Number: None

PATIENT
  Sex: Female

DRUGS (2)
  1. REXULTI [Suspect]
     Active Substance: BREXPIPRAZOLE
  2. INGREZZA [Concomitant]
     Active Substance: VALBENAZINE

REACTIONS (4)
  - Tardive dyskinesia [None]
  - Oral disorder [None]
  - Tongue injury [None]
  - Hypophagia [None]

NARRATIVE: CASE EVENT DATE: 20240801
